FAERS Safety Report 7731975-0 (Version None)
Quarter: 2011Q3

REPORT INFORMATION
  Report Type: 
  Country: None (occurrence: None)
  Receive Date: 20110906
  Receipt Date: 20110721
  Transmission Date: 20111222
  Serious: Yes (Hospitalization)
  Sender: FDA-Public Use
  Company Number: US-AMGEN-USASP2011037262

PATIENT
  Sex: Male

DRUGS (4)
  1. ANALGESICS [Concomitant]
  2. ANTI-NAUSEA                        /00013304/ [Concomitant]
  3. ANTI-DIARRHEAL [Concomitant]
  4. XGEVA [Suspect]
     Dosage: 120 MG, Q4WK

REACTIONS (4)
  - HYPOCALCAEMIA [None]
  - NAUSEA [None]
  - ELECTROLYTE IMBALANCE [None]
  - HYPOPHOSPHATAEMIA [None]
